FAERS Safety Report 16844083 (Version 1)
Quarter: 2019Q3

REPORT INFORMATION
  Report Type: Spontaneous
  Country: US (occurrence: US)
  Receive Date: 20190924
  Receipt Date: 20190924
  Transmission Date: 20191005
  Serious: Yes (Hospitalization, Other)
  Sender: FDA-Public Use
  Company Number: US-AMNEAL PHARMACEUTICALS-2019AMN00910

PATIENT
  Age: 7 Year
  Sex: Male

DRUGS (2)
  1. VIGABATRIN. [Suspect]
     Active Substance: VIGABATRIN
     Indication: PARTIAL SEIZURES
     Dosage: 3 PACKETS TWICE DAILY
     Route: 048
  2. VIGABATRIN. [Suspect]
     Active Substance: VIGABATRIN
     Dosage: 1 PACKET TWICE DAILY
     Route: 048

REACTIONS (2)
  - Change in seizure presentation [Unknown]
  - Seizure [Unknown]

NARRATIVE: CASE EVENT DATE: 20190623
